FAERS Safety Report 8850936 (Version 4)
Quarter: 2013Q1

REPORT INFORMATION
  Report Type: Spontaneous
  Country: US (occurrence: US)
  Receive Date: 20121019
  Receipt Date: 20130228
  Transmission Date: 20140127
  Serious: Yes (Other)
  Sender: FDA-Public Use
  Company Number: US-PFIZER INC-2012257902

PATIENT
  Age: 65 Year
  Sex: Male
  Weight: 76 kg

DRUGS (5)
  1. TORISEL [Suspect]
     Indication: RENAL CELL CARCINOMA
     Dosage: 25 MG, CYCLIC (25 MG WEEKLY FOR 16 WKS, CYCLES GIVEN 6/7)
     Route: 042
     Dates: start: 20120629, end: 20120803
  2. PRILOSEC [Concomitant]
     Dosage: UNK
  3. PROMETHAZINE [Concomitant]
     Dosage: UNK, AS NEEDED
  4. ZOFRAN [Concomitant]
     Dosage: UNK, AS NEEDED
  5. OXYCODONE [Concomitant]
     Indication: PAIN
     Dosage: UNK

REACTIONS (10)
  - Hilar lymphadenopathy [Unknown]
  - Disease progression [Not Recovered/Not Resolved]
  - Renal cancer [Unknown]
  - Nodule [Unknown]
  - Dehydration [Unknown]
  - Vomiting [Unknown]
  - Nausea [Recovered/Resolved with Sequelae]
  - Fatigue [Not Recovered/Not Resolved]
  - Myalgia [Recovered/Resolved with Sequelae]
  - Decreased appetite [Recovered/Resolved]
